FAERS Safety Report 6234541-1 (Version None)
Quarter: 2009Q2

REPORT INFORMATION
  Report Type: 
  Country: None (occurrence: None)
  Receive Date: 20090615
  Receipt Date: 20090427
  Transmission Date: 20091009
  Serious: No
  Sender: FDA-Public Use
  Company Number: DSA_33565_2009

PATIENT
  Age: 57 Year
  Sex: Female

DRUGS (4)
  1. XENAZINE [Suspect]
     Indication: MUSCLE SPASMS
     Dosage: 25 MG TID
     Dates: start: 20090201, end: 20090301
  2. ALPRAZOLAM [Suspect]
     Indication: DRUG USE FOR UNKNOWN INDICATION
     Dosage: DF
  3. AMITRIPTYLINE HCL [Suspect]
     Indication: DRUG USE FOR UNKNOWN INDICATION
     Dosage: DF
  4. TRIABSYBAEMIBYL [Suspect]
     Indication: DRUG USE FOR UNKNOWN INDICATION
     Dosage: DF

REACTIONS (4)
  - DRUG INEFFECTIVE FOR UNAPPROVED INDICATION [None]
  - DRUG INTERACTION [None]
  - MALAISE [None]
  - MUSCLE SPASMS [None]
